FAERS Safety Report 7813009-2 (Version None)
Quarter: 2011Q4

REPORT INFORMATION
  Report Type: 
  Country: None (occurrence: None)
  Receive Date: 20111013
  Receipt Date: 20111006
  Transmission Date: 20120403
  Serious: Yes (Life-Threatening)
  Sender: FDA-Public Use
  Company Number: GB-ROCHE-1003273

PATIENT
  Age: 86 Year
  Sex: Female

DRUGS (10)
  1. ISOSORBIDE MONONITRATE [Concomitant]
  2. BISOPROLOL [Concomitant]
  3. VALSARTAN [Concomitant]
  4. ASPIRIN [Concomitant]
  5. FUROSEMIDE [Concomitant]
  6. INSULIN [Concomitant]
  7. NICORANDIL [Concomitant]
  8. SIMVASTATIN [Concomitant]
  9. TRAVOPROST [Concomitant]
  10. LUCENTIS [Suspect]
     Indication: PRODUCT USED FOR UNKNOWN INDICATION
     Route: 050
     Dates: start: 20110606

REACTIONS (1)
  - MYOCARDIAL INFARCTION [None]
